FAERS Safety Report 5201133-2 (Version None)
Quarter: 2007Q1

REPORT INFORMATION
  Report Type: 
  Country: None (occurrence: None)
  Receive Date: 20070103
  Receipt Date: 20060810
  Transmission Date: 20070707
  Serious: Yes (Death)
  Sender: FDA-Public Use
  Company Number: 0606-378

PATIENT
  Age: 5 Day
  Sex: Female
  Weight: 0.7 kg

DRUGS (5)
  1. CUROSURF [Suspect]
     Indication: NEONATAL RESPIRATORY DISTRESS SYNDROME
     Dosage: 72 MILLIGRAMS, INTRATRACHAEL
     Route: 039
     Dates: start: 20060530
  2. AMPICILLIN [Concomitant]
  3. GENTAMICIN SULFATE [Concomitant]
  4. FLUCONASOLE [Concomitant]
  5. ALIKE [Concomitant]

REACTIONS (11)
  - BRADYCARDIA NEONATAL [None]
  - DEATH NEONATAL [None]
  - DEHYDRATION [None]
  - EXCORIATION [None]
  - IMMATURE RESPIRATORY SYSTEM [None]
  - METABOLIC ACIDOSIS [None]
  - MUCOSAL HYPERAEMIA [None]
  - NEONATAL CARDIAC FAILURE [None]
  - NEONATAL DISORDER [None]
  - PNEUMOTHORAX [None]
  - VULVAL DISORDER [None]
